FAERS Safety Report 7060211-6 (Version None)
Quarter: 2010Q4

REPORT INFORMATION
  Report Type: 
  Country: None (occurrence: None)
  Receive Date: 20101025
  Receipt Date: 20101018
  Transmission Date: 20110411
  Serious: Yes (Hospitalization)
  Sender: FDA-Public Use
  Company Number: BR-ROCHE-735518

PATIENT
  Sex: Male
  Weight: 63 kg

DRUGS (9)
  1. TOCILIZUMAB [Suspect]
     Indication: RHEUMATOID ARTHRITIS
     Dosage: FORM: INFUSION
     Route: 065
     Dates: start: 20100915, end: 20100915
  2. TOCILIZUMAB [Suspect]
     Route: 065
     Dates: start: 20101013, end: 20101013
  3. RITUXIMAB [Suspect]
     Indication: RHEUMATOID ARTHRITIS
     Dosage: FORM: INFUSION
     Route: 065
     Dates: start: 20091215, end: 20100101
  4. PREDNISONE [Concomitant]
     Indication: PAIN
  5. ADEROGIL D3 [Concomitant]
  6. CALCIUM BICARBONATE [Concomitant]
     Dosage: TDD: 4 SPOONS /DAY
  7. POTASSIUM CHLORIDE [Concomitant]
  8. ASCORBIC ACID [Concomitant]
  9. IRON [Concomitant]

REACTIONS (3)
  - LEUKOPENIA [None]
  - RHEUMATOID ARTHRITIS [None]
  - VARICES OESOPHAGEAL [None]
